FAERS Safety Report 6585129-4 (Version None)
Quarter: 2010Q1

REPORT INFORMATION
  Report Type: 
  Country: None (occurrence: None)
  Receive Date: 20100217
  Receipt Date: 20100205
  Transmission Date: 20100710
  Serious: Yes (Other)
  Sender: FDA-Public Use
  Company Number: US-PFIZER INC-2009284525

PATIENT
  Sex: Female

DRUGS (1)
  1. SUTENT [Suspect]
     Indication: METASTATIC RENAL CELL CARCINOMA
     Dosage: 50 MG, 1X/DAY FOR 28 DAYS EVERY 42 DAYS
     Route: 048
     Dates: start: 20090930

REACTIONS (7)
  - ALOPECIA [None]
  - DRY SKIN [None]
  - GASTROOESOPHAGEAL REFLUX DISEASE [None]
  - HAIR COLOUR CHANGES [None]
  - HYPERTENSION [None]
  - NEUROPATHY PERIPHERAL [None]
  - PALMAR-PLANTAR ERYTHRODYSAESTHESIA SYNDROME [None]
